FAERS Safety Report 7129008-2 (Version None)
Quarter: 2010Q4

REPORT INFORMATION
  Report Type: 
  Country: None (occurrence: None)
  Receive Date: 20101130
  Receipt Date: 20101116
  Transmission Date: 20110411
  Serious: Yes (Hospitalization)
  Sender: FDA-Public Use
  Company Number: GXKR2010US13003

PATIENT
  Age: 63 Year
  Sex: Female

DRUGS (3)
  1. SOTALOL HCL [Suspect]
     Indication: ATRIAL FIBRILLATION
     Dosage: 80 MG, BID
  2. OSELTAMIVIR [Interacting]
     Dosage: 75 MG, BID
     Route: 048
  3. AMPICILLIN W/SULBACTAM [Concomitant]
     Indication: PYELONEPHRITIS

REACTIONS (14)
  - BLOOD THYROID STIMULATING HORMONE DECREASED [None]
  - CARDIOVERSION [None]
  - COUGH [None]
  - DRUG INTERACTION [None]
  - INFLUENZA [None]
  - MALAISE [None]
  - MYALGIA [None]
  - NAUSEA [None]
  - PYELONEPHRITIS [None]
  - PYREXIA [None]
  - TORSADE DE POINTES [None]
  - UNRESPONSIVE TO STIMULI [None]
  - VENTRICULAR FIBRILLATION [None]
  - VOMITING [None]
